FAERS Safety Report 10224032 (Version 1)
Quarter: 2014Q2

REPORT INFORMATION
  Report Type: Spontaneous
  Country: DE (occurrence: DE)
  Receive Date: 20140609
  Receipt Date: 20140609
  Transmission Date: 20141212
  Serious: Yes (Hospitalization)
  Sender: FDA-Public Use
  Company Number: DE-DRREDDYS-USA/GER/14/0040986

PATIENT
  Age: 29 Year
  Sex: Female

DRUGS (6)
  1. OLANZAPINE [Suspect]
     Indication: SLEEP DISORDER
     Route: 065
  2. CLOZAPINE [Interacting]
     Indication: SCHIZOPHRENIA
     Route: 065
  3. CLOZAPINE [Interacting]
     Route: 065
  4. CLOZAPINE [Interacting]
     Route: 065
  5. FLUVOXAMINE [Interacting]
     Indication: SCHIZOPHRENIA
     Route: 065
  6. FLUVOXAMINE [Interacting]
     Route: 065

REACTIONS (7)
  - Drug interaction [Recovered/Resolved]
  - Obsessive-compulsive disorder [Recovered/Resolved]
  - Overweight [Recovered/Resolved]
  - Constipation [Recovered/Resolved]
  - Dry mouth [Recovered/Resolved]
  - Vision blurred [Recovered/Resolved]
  - Drug level above therapeutic [Recovered/Resolved]
